FAERS Safety Report 11632905 (Version 2)
Quarter: 2015Q4

REPORT INFORMATION
  Report Type: Spontaneous
  Country: US (occurrence: US)
  Receive Date: 20151015
  Receipt Date: 20151222
  Transmission Date: 20160304
  Serious: No
  Sender: FDA-Public Use
  Company Number: US-009507513-1510USA005517

PATIENT
  Age: 14 Year
  Sex: Female
  Weight: 50.79 kg

DRUGS (1)
  1. IMPLANON [Suspect]
     Active Substance: ETONOGESTREL
     Indication: CONTRACEPTION
     Dosage: UNK
     Route: 059
     Dates: start: 20150901

REACTIONS (5)
  - Asthenia [Unknown]
  - Dizziness [Unknown]
  - Headache [Unknown]
  - Pallor [Unknown]
  - Menorrhagia [Unknown]

NARRATIVE: CASE EVENT DATE: 2015
